FAERS Safety Report 8309083 (Version 2)
Quarter: 2016Q2

REPORT INFORMATION
  Report Type: Report from Study
  Country: JP (occurrence: JP)
  Receive Date: 20111222
  Receipt Date: 20160603
  Transmission Date: 20160815
  Serious: Yes (Death, Hospitalization)
  Sender: FDA-Public Use
  Company Number: JP-CELGENEUS-087-50794-11122703

PATIENT
  Age: 80 Year
  Sex: Male
  Weight: 51 kg

DRUGS (3)
  1. BAKTAR [Concomitant]
     Active Substance: SULFAMETHOXAZOLE\TRIMETHOPRIM
     Indication: PRODUCT USED FOR UNKNOWN INDICATION
     Route: 065
     Dates: end: 20111202
  2. THYRADIN [Concomitant]
     Active Substance: LEVOTHYROXINE
     Indication: PRODUCT USED FOR UNKNOWN INDICATION
     Route: 065
     Dates: end: 20111202
  3. VIDAZA [Suspect]
     Active Substance: AZACITIDINE
     Indication: MYELODYSPLASTIC SYNDROME
     Dosage: 100 MILLIGRAM
     Route: 041
     Dates: start: 20111129, end: 20111201

REACTIONS (3)
  - Enteritis infectious [Fatal]
  - Acute kidney injury [Not Recovered/Not Resolved]
  - Intestinal obstruction [Not Recovered/Not Resolved]

NARRATIVE: CASE EVENT DATE: 20111201
